FAERS Safety Report 17324681 (Version 1)
Quarter: 2020Q1

REPORT INFORMATION
  Report Type: Spontaneous
  Country: FR (occurrence: FR)
  Receive Date: 20200127
  Receipt Date: 20200127
  Transmission Date: 20200409
  Serious: Yes (Death, Hospitalization)
  Sender: FDA-Public Use
  Company Number: FR-ROCHE-2524773

PATIENT
  Age: 77 Year
  Sex: Male

DRUGS (1)
  1. LUCENTIS [Suspect]
     Active Substance: RANIBIZUMAB
     Indication: AGE-RELATED MACULAR DEGENERATION
     Dosage: 1 ML, TOTAL
     Route: 031
     Dates: start: 20191007, end: 20191007

REACTIONS (2)
  - Cardio-respiratory arrest [Fatal]
  - Coronary artery occlusion [Fatal]

NARRATIVE: CASE EVENT DATE: 20191007
